FAERS Safety Report 16754261 (Version 4)
Quarter: 2020Q3

REPORT INFORMATION
  Report Type: Spontaneous
  Country: GB (occurrence: GB)
  Receive Date: 20190829
  Receipt Date: 20200916
  Transmission Date: 20201102
  Serious: Yes (Life-Threatening, Disabling, Congenital Anomaly, Other)
  Sender: FDA-Public Use
  Company Number: GB-IPSEN BIOPHARMACEUTICALS, INC.-2019-15269

PATIENT
  Age: 35 Year
  Sex: Male
  Weight: 82.55 kg

DRUGS (2)
  1. DYSPORT [Suspect]
     Active Substance: ABOBOTULINUMTOXINA
     Indication: JOINT DISLOCATION
     Dosage: 120
     Route: 051
     Dates: start: 20020221, end: 20020221
  2. DYSPORT [Suspect]
     Active Substance: ABOBOTULINUMTOXINA
     Indication: OFF LABEL USE

REACTIONS (15)
  - Vocal cord paralysis [Recovering/Resolving]
  - Suspected product quality issue [Unknown]
  - Off label use [Unknown]
  - Respiration abnormal [Unknown]
  - Palatal disorder [Recovering/Resolving]
  - Muscular weakness [Unknown]
  - Aphasia [Recovering/Resolving]
  - Alopecia [Recovered/Resolved]
  - Blood cholesterol increased [Unknown]
  - Aphonia [Recovering/Resolving]
  - Arrhythmia [Unknown]
  - Suffocation feeling [Unknown]
  - Hyperhidrosis [Unknown]
  - Dysphagia [Unknown]
  - Dyspnoea [Unknown]

NARRATIVE: CASE EVENT DATE: 20020221
